FAERS Safety Report 4526069-1 (Version None)
Quarter: 2004Q4

REPORT INFORMATION
  Report Type: 
  Country: None (occurrence: None)
  Receive Date: 20041129
  Receipt Date: 20040927
  Transmission Date: 20050328
  Serious: Yes (Hospitalization)
  Sender: FDA-Public Use
  Company Number: USA040772550

PATIENT
  Age: 24 Year
  Sex: Female
  Weight: 53 kg

DRUGS (6)
  1. ZYPREXA [Suspect]
     Indication: MOOD SWINGS
     Dosage: 7.5 MG DAY
     Dates: start: 20040706, end: 20040712
  2. GABITRIL (TITAGABINE HYDROCHLORIDE) [Concomitant]
  3. LEXAPRO [Concomitant]
  4. VIOXX [Concomitant]
  5. TORADOL [Concomitant]
  6. SONATA [Concomitant]

REACTIONS (7)
  - HEADACHE [None]
  - INCREASED APPETITE [None]
  - OEDEMA [None]
  - SOMNOLENCE [None]
  - TACHYCARDIA [None]
  - TREMOR [None]
  - WEIGHT INCREASED [None]
